FAERS Safety Report 17485782 (Version 1)
Quarter: 2020Q1

REPORT INFORMATION
  Report Type: Spontaneous
  Country: FR (occurrence: FR)
  Receive Date: 20200303
  Receipt Date: 20200303
  Transmission Date: 20200409
  Serious: Yes (Hospitalization)
  Sender: FDA-Public Use
  Company Number: FR-TEVA-2020-FR-1193898

PATIENT
  Age: 28 Year
  Sex: Female
  Weight: 59 kg

DRUGS (5)
  1. LOXAPAC 50 MG, COMPRIM? PELLICUL? [Suspect]
     Active Substance: LOXAPINE SUCCINATE
     Indication: DRUG WITHDRAWAL SYNDROME
     Dosage: 200 MG
     Route: 048
     Dates: start: 20200116
  2. QUETIAPINE. [Suspect]
     Active Substance: QUETIAPINE
     Indication: DRUG WITHDRAWAL SYNDROME
     Dosage: 600 MG
     Route: 048
     Dates: start: 20200123
  3. VALIUM [Concomitant]
     Active Substance: DIAZEPAM
  4. TERCIAN 25 MG, COMPRIM? PELLICUL? S?CABLE [Suspect]
     Active Substance: CYAMEMAZINE
     Indication: DRUG WITHDRAWAL SYNDROME
     Dosage: 3 DF
     Route: 048
     Dates: start: 20200115, end: 20200116
  5. SUBUTEX [Concomitant]
     Active Substance: BUPRENORPHINE HYDROCHLORIDE

REACTIONS (1)
  - Faecaloma [Recovering/Resolving]

NARRATIVE: CASE EVENT DATE: 20200124
